FAERS Safety Report 9398973 (Version 2)
Quarter: 2013Q3

REPORT INFORMATION
  Report Type: Spontaneous
  Country: PT (occurrence: PT)
  Receive Date: 20130712
  Receipt Date: 20130717
  Transmission Date: 20140515
  Serious: Yes (Other)
  Sender: FDA-Public Use
  Company Number: PT-TEVA-416189ISR

PATIENT
  Age: 76 Year
  Sex: Male
  Weight: 81 kg

DRUGS (7)
  1. AMOXICILINA + ACIDO CLAVULANICO RATIOPHARM 875 MG E 125MG COMPRIMIDOS [Suspect]
     Indication: URINARY TRACT INFECTION
     Dosage: AMOXICILIN 875 MG+CLAVULANIC ACID 125MG
     Route: 048
     Dates: start: 20130516, end: 20130523
  2. MELOXICAM TETRAFARMA [Concomitant]
     Dosage: 15 MILLIGRAM DAILY;
     Route: 048
  3. DIAMICRON LM 30 MG [Concomitant]
     Dosage: 60 MILLIGRAM DAILY; MODIFIED-RELEASE
     Route: 048
  4. STAGID [Concomitant]
     Dosage: 1400 MILLIGRAM DAILY;
     Route: 048
  5. LOSARTAN + HIDROCLOROTIAZIDA TETRAFARMA [Concomitant]
     Dosage: 1 DOSAGE FORMS DAILY; FILM-COATED TABLET
  6. FENOFIBRATO [Concomitant]
     Dosage: 267 MILLIGRAM DAILY;
     Route: 048
  7. PRISMA [Concomitant]

REACTIONS (3)
  - Dermatitis exfoliative generalised [Recovering/Resolving]
  - Pruritus [Recovering/Resolving]
  - Paraesthesia [Recovered/Resolved]
